FAERS Safety Report 24531956 (Version 3)
Quarter: 2024Q4

REPORT INFORMATION
  Report Type: 
  Country: JP (occurrence: JP)
  Receive Date: 20241022
  Receipt Date: 20241224
  Transmission Date: 20250115
  Serious: Yes (Other)
  Sender: JOHNSON AND JOHNSON
  Company Number: JP-JNJFOC-20241056536

PATIENT
  Age: 86 Year
  Sex: Male
  Weight: 61 kg

DRUGS (7)
  1. ERLEADA [Suspect]
     Active Substance: APALUTAMIDE
     Indication: Prostate cancer
     Route: 048
     Dates: start: 20231205, end: 20231219
  2. ERLEADA [Suspect]
     Active Substance: APALUTAMIDE
     Route: 048
     Dates: start: 20240105, end: 20240202
  3. ZYTIGA [Suspect]
     Active Substance: ABIRATERONE ACETATE
     Indication: Prostate cancer
     Route: 048
     Dates: start: 20240202
  4. GLYCOSAMINOGLYCANS [Concomitant]
     Active Substance: GLYCOSAMINOGLYCANS
     Indication: Product used for unknown indication
     Dosage: DOSE UNKNOWN
     Route: 061
     Dates: start: 20240119
  5. FLURANDRENOLIDE [Concomitant]
     Active Substance: FLURANDRENOLIDE
     Indication: Product used for unknown indication
     Dosage: DOSE UNKNOW
     Route: 062
     Dates: end: 20240301
  6. DEGARELIX [Concomitant]
     Active Substance: DEGARELIX
     Indication: Product used for unknown indication
     Route: 058
     Dates: start: 20231205, end: 20240301
  7. OLOPATADINE HYDROCHLORIDE [Concomitant]
     Active Substance: OLOPATADINE HYDROCHLORIDE
     Indication: Rash
     Dosage: DOSE UNKNOWN
     Route: 048
     Dates: start: 20231219

REACTIONS (3)
  - Oedema peripheral [Recovered/Resolved]
  - Rash [Recovering/Resolving]
  - Off label use [Unknown]

NARRATIVE: CASE EVENT DATE: 20231213
